FAERS Safety Report 25884086 (Version 1)
Quarter: 2025Q4

REPORT INFORMATION
  Report Type: Spontaneous
  Country: CA (occurrence: CA)
  Receive Date: 20251006
  Receipt Date: 20251006
  Transmission Date: 20260118
  Serious: Yes (Life-Threatening)
  Sender: MYLAN
  Company Number: CA-MYLANLABS-2025M1084880

PATIENT
  Age: 75 Year
  Sex: Female
  Weight: 75.74 kg

DRUGS (1)
  1. AMLODIPINE [Suspect]
     Active Substance: AMLODIPINE BESYLATE
     Indication: Angina pectoris
     Dosage: 5 MILLIGRAM, QD (1 EVERY 1 DAYS)

REACTIONS (5)
  - Anaphylactic reaction [Recovered/Resolved]
  - Reaction to preservatives [Recovered/Resolved]
  - Throat tightness [Recovered/Resolved]
  - Dyspnoea [Recovered/Resolved]
  - Nausea [Recovered/Resolved]
